FAERS Safety Report 16693341 (Version 1)
Quarter: 2019Q3

REPORT INFORMATION
  Report Type: Spontaneous
  Country: US (occurrence: US)
  Receive Date: 20190625
  Receipt Date: 20190625
  Transmission Date: 20191004
  Serious: Yes (Death)
  Sender: FDA-Public Use
  Company Number: None

PATIENT
  Age: 59 Year
  Sex: Female
  Weight: 90.9 kg

DRUGS (18)
  1. ATROPINE. [Concomitant]
     Active Substance: ATROPINE
  2. GUAIFENESIN. [Concomitant]
     Active Substance: GUAIFENESIN
  3. CLOBETASOL [Concomitant]
     Active Substance: CLOBETASOL
  4. MORPHINE [Concomitant]
     Active Substance: MORPHINE
  5. BISACODYL. [Concomitant]
     Active Substance: BISACODYL
  6. REGORAFENIB. [Suspect]
     Active Substance: REGORAFENIB
     Indication: RECTAL CANCER METASTATIC
     Route: 048
     Dates: start: 20170623, end: 20170727
  7. LOSARTAN. [Concomitant]
     Active Substance: LOSARTAN
  8. PROMETHAZINE [Concomitant]
     Active Substance: PROMETHAZINE HYDROCHLORIDE
  9. DOCUSATE SODIUM. [Concomitant]
     Active Substance: DOCUSATE SODIUM
  10. MAGNESIUM OXIDE. [Concomitant]
     Active Substance: MAGNESIUM OXIDE
  11. OXYCODONE [Concomitant]
     Active Substance: OXYCODONE
  12. LABETALOL [Concomitant]
     Active Substance: LABETALOL\LABETALOL HYDROCHLORIDE
  13. METOCLOPRAMIDE. [Concomitant]
     Active Substance: METOCLOPRAMIDE
  14. MIRALAX [Concomitant]
     Active Substance: POLYETHYLENE GLYCOL 3350
  15. SENNA [Concomitant]
     Active Substance: SENNA LEAF\SENNOSIDES\SENNOSIDES A AND B
  16. LORAZEPAM. [Concomitant]
     Active Substance: LORAZEPAM
  17. PROCHLORPERAZINE. [Concomitant]
     Active Substance: PROCHLORPERAZINE
  18. ONDANSETRON [Concomitant]
     Active Substance: ONDANSETRON

REACTIONS (1)
  - Malignant neoplasm progression [None]
